FAERS Safety Report 5821251-5 (Version None)
Quarter: 2008Q3

REPORT INFORMATION
  Report Type: 
  Country: None (occurrence: None)
  Receive Date: 20080721
  Receipt Date: 20080708
  Transmission Date: 20090109
  Serious: Yes (Hospitalization)
  Sender: FDA-Public Use
  Company Number: 2008BI012005

PATIENT
  Age: 59 Year
  Sex: Female

DRUGS (2)
  1. AVONEX [Suspect]
     Indication: MULTIPLE SCLEROSIS
     Dosage: 30 UG;QW;IM; IM
     Route: 030
     Dates: start: 20050906, end: 20080424
  2. AVONEX [Suspect]
     Indication: MULTIPLE SCLEROSIS
     Dosage: 30 UG;QW;IM; IM
     Route: 030
     Dates: start: 20080605

REACTIONS (4)
  - EXCORIATION [None]
  - IMPAIRED HEALING [None]
  - SKIN EXFOLIATION [None]
  - SKIN ULCER [None]
